FAERS Safety Report 19069083 (Version 1)
Quarter: 2021Q1

REPORT INFORMATION
  Report Type: Report from Study
  Country: ES (occurrence: ES)
  Receive Date: 20210329
  Receipt Date: 20210329
  Transmission Date: 20210420
  Serious: Yes (Hospitalization)
  Sender: FDA-Public Use
  Company Number: ES-SA-2021SA103715

PATIENT
  Age: 82 Year
  Sex: Female
  Weight: 77 kg

DRUGS (21)
  1. IRINOTECAN [Suspect]
     Active Substance: IRINOTECAN
     Indication: COLON CANCER
     Dosage: 258 MG, QOW
     Route: 042
     Dates: start: 20200218, end: 20200218
  2. IRINOTECAN [Suspect]
     Active Substance: IRINOTECAN
     Dosage: 258 MG, QOW
     Route: 042
     Dates: start: 20200526, end: 20200526
  3. DEXKETOPROFEN [Concomitant]
     Active Substance: DEXKETOPROFEN
     Indication: PAIN
     Dosage: 75 MG
     Route: 048
     Dates: start: 20201116
  4. FLUNARIZINE HYDROCHLORIDE [Concomitant]
     Active Substance: FLUNARIZINE HYDROCHLORIDE
     Indication: VERTIGO
     Dosage: 5 MG
     Route: 048
     Dates: start: 20151123
  5. LEVOTHYROXINE. [Concomitant]
     Active Substance: LEVOTHYROXINE
     Indication: HYPOTHYROIDISM
     Dosage: 225 MG
     Route: 048
     Dates: start: 20180928
  6. FLUOROURACIL. [Suspect]
     Active Substance: FLUOROURACIL
     Indication: COLON CANCER
     Dosage: 4128 MG, QOW
     Route: 042
     Dates: start: 20200218, end: 20200218
  7. FOLINIC ACID [Suspect]
     Active Substance: LEUCOVORIN
     Dosage: 680 MG, QOW
     Route: 042
     Dates: start: 20210315, end: 20210315
  8. TRAMADOL. [Concomitant]
     Active Substance: TRAMADOL
     Indication: PAIN
     Dosage: 1125 MG
     Route: 048
     Dates: start: 20210201, end: 2021
  9. METOCLOPRAMIDE. [Concomitant]
     Active Substance: METOCLOPRAMIDE
     Indication: PROPHYLAXIS
     Dosage: 3 MG
     Route: 048
     Dates: start: 20210118
  10. FLUOROURACIL. [Suspect]
     Active Substance: FLUOROURACIL
     Dosage: 4128 MG, QOW
     Route: 042
     Dates: start: 20210315, end: 20210315
  11. VALSARTAN. [Concomitant]
     Active Substance: VALSARTAN
     Indication: HYPERTENSION
     Dosage: 80 MG
     Route: 048
     Dates: start: 20210104
  12. AFLIBERCEPT [Suspect]
     Active Substance: AFLIBERCEPT
     Indication: COLON CANCER
     Dosage: 308 MG, QOW
     Route: 042
     Dates: start: 20200218, end: 20210218
  13. AFLIBERCEPT [Suspect]
     Active Substance: AFLIBERCEPT
     Dosage: 308 MG, QOW
     Route: 042
     Dates: start: 20210315, end: 20210315
  14. FOLINIC ACID [Suspect]
     Active Substance: LEUCOVORIN
     Indication: COLON CANCER
     Dosage: 680 MG, QOW
     Route: 042
     Dates: start: 20200218, end: 20200218
  15. FENTANYL. [Concomitant]
     Active Substance: FENTANYL
     Indication: PAIN
     Dosage: 288 UG
     Route: 062
     Dates: start: 20210301
  16. METAMIZOLE [Concomitant]
     Active Substance: METAMIZOLE
     Indication: PAIN
     Dosage: 1725 MG
     Route: 048
     Dates: start: 20201214
  17. PARACETAMOL [Concomitant]
     Active Substance: ACETAMINOPHEN
     Indication: PAIN
     Dosage: 975 MG
     Route: 048
     Dates: start: 20210201
  18. TORASEMIDE [Concomitant]
     Active Substance: TORSEMIDE
     Indication: HYPERTENSION
     Dosage: 10 MG
     Route: 048
     Dates: start: 20130515
  19. AMITRIPTYLINE [Concomitant]
     Active Substance: AMITRIPTYLINE
     Indication: PRODUCT USED FOR UNKNOWN INDICATION
     Dosage: 35 MG
     Route: 048
     Dates: start: 20130311
  20. DIAZEPAM. [Concomitant]
     Active Substance: DIAZEPAM
     Indication: PRODUCT USED FOR UNKNOWN INDICATION
     Dosage: 5 MG
     Route: 048
     Dates: start: 20210201
  21. DEXAMETHASONE. [Concomitant]
     Active Substance: DEXAMETHASONE
     Indication: PROPHYLAXIS
     Dosage: 8 MG
     Route: 048
     Dates: start: 20210310

REACTIONS (1)
  - Intestinal ischaemia [Not Recovered/Not Resolved]

NARRATIVE: CASE EVENT DATE: 20210317
